FAERS Safety Report 5128736-8 (Version None)
Quarter: 2006Q4

REPORT INFORMATION
  Report Type: 
  Country: None (occurrence: None)
  Receive Date: 20061011
  Receipt Date: 20060925
  Transmission Date: 20070319
  Serious: Yes (Death, Hospitalization)
  Sender: FDA-Public Use
  Company Number: 2006CT000751

PATIENT
  Age: 48 Year
  Sex: Male
  Weight: 81.6475 kg

DRUGS (8)
  1. VENTAVIS [Suspect]
     Indication: PULMONARY HYPERTENSION
     Dosage: 2.5 UG; 3X/DAY; INH
     Route: 055
     Dates: start: 20060321, end: 20060616
  2. ALDACTONE [Concomitant]
  3. LASIX [Concomitant]
  4. METHADONE [Concomitant]
  5. LACTULOSE [Concomitant]
  6. CIPROFLOXACIN HCL [Concomitant]
  7. METOCLOPRAMIDE [Concomitant]
  8. NADOLOL [Concomitant]

REACTIONS (5)
  - GASTROINTESTINAL HAEMORRHAGE [None]
  - HEPATORENAL SYNDROME [None]
  - JAUNDICE [None]
  - KIDNEY ENLARGEMENT [None]
  - LYMPHADENOPATHY [None]
